FAERS Safety Report 9203122 (Version 1)
Quarter: 2013Q2

REPORT INFORMATION
  Report Type: Spontaneous
  Country: FR (occurrence: FR)
  Receive Date: 20130402
  Receipt Date: 20130402
  Transmission Date: 20140414
  Serious: Yes (Hospitalization)
  Sender: FDA-Public Use
  Company Number: FR-009507513-1302FRA002777

PATIENT
  Age: 28 Year
  Sex: Male
  Weight: 110 kg

DRUGS (1)
  1. STROMECTOL [Suspect]
     Indication: ACARODERMATITIS
     Dosage: 6 DF, ONCE
     Route: 048
     Dates: start: 20130205

REACTIONS (7)
  - Balance disorder [Recovered/Resolved]
  - Vertigo positional [Recovered/Resolved]
  - Incoherent [Recovered/Resolved]
  - Retrograde amnesia [Recovered/Resolved]
  - Somnolence [Recovered/Resolved]
  - Nausea [Unknown]
  - Vomiting [Unknown]
